FAERS Safety Report 25510323 (Version 1)
Quarter: 2025Q3

REPORT INFORMATION
  Report Type: Spontaneous
  Country: EU (occurrence: EU)
  Receive Date: 20250703
  Receipt Date: 20250703
  Transmission Date: 20251020
  Serious: Yes (Other)
  Sender: ABBVIE
  Company Number: None

PATIENT
  Age: 48 Year
  Sex: Male
  Weight: 70 kg

DRUGS (1)
  1. IMBRUVICA [Suspect]
     Active Substance: IBRUTINIB
     Indication: Mantle cell lymphoma
     Dosage: IMBRUVICA 560 MG COATED TABLETS, 1 CP DAILY
     Route: 048
     Dates: start: 20250224, end: 20250331

REACTIONS (3)
  - Pericardial effusion [Recovered/Resolved]
  - Lymphoedema [Recovered/Resolved]
  - Pleural effusion [Recovered/Resolved]

NARRATIVE: CASE EVENT DATE: 20250326
